FAERS Safety Report 8634035 (Version 4)
Quarter: 2014Q2

REPORT INFORMATION
  Report Type: Spontaneous
  Country: US (occurrence: US)
  Receive Date: 20120626
  Receipt Date: 20140415
  Transmission Date: 20141212
  Serious: Yes (Hospitalization, Disabling)
  Sender: FDA-Public Use
  Company Number: US-ASTRAZENECA-2012SE35890

PATIENT
  Age: 52 Year
  Sex: Female

DRUGS (23)
  1. NEXIUM [Suspect]
     Indication: GASTROOESOPHAGEAL REFLUX DISEASE
     Dosage: ONCE A DAY
     Route: 048
     Dates: start: 1999, end: 2011
  2. NEXIUM [Suspect]
     Indication: GASTROOESOPHAGEAL REFLUX DISEASE
     Route: 048
     Dates: start: 20071127
  3. DEXILANT [Concomitant]
     Indication: GASTROOESOPHAGEAL REFLUX DISEASE
     Dosage: ONCE A DAY
     Dates: start: 2010, end: 2013
  4. TUMS [Concomitant]
     Dosage: AS NEEDED
  5. PEPTO-BISMOL [Concomitant]
  6. ZANTAC [Concomitant]
     Dates: start: 2012
  7. ZANTAC [Concomitant]
     Dates: start: 20050506
  8. PRAVACHOL [Concomitant]
     Dates: start: 20071120
  9. HYDROCODON [Concomitant]
  10. MORPHIN [Concomitant]
  11. METFORMIN [Concomitant]
  12. EVOXIN [Concomitant]
  13. ENABLEX [Concomitant]
  14. DYCLOMINE [Concomitant]
  15. AMBIEN [Concomitant]
     Dates: start: 20101013
  16. CALCIUM [Concomitant]
  17. ESTROGEN [Concomitant]
  18. MUCINEX [Concomitant]
     Dates: start: 20100710
  19. KLOR-CON [Concomitant]
     Dates: start: 20071120
  20. FLUDROCORTISONE [Concomitant]
     Route: 048
     Dates: start: 20070411
  21. CLARITIN [Concomitant]
     Route: 048
     Dates: start: 20080221
  22. GLUCOTROL XL [Concomitant]
     Dates: start: 20040819
  23. PREVACID [Concomitant]
     Dates: start: 20041006

REACTIONS (15)
  - Neck deformity [Unknown]
  - Back disorder [Unknown]
  - Hypotension [Unknown]
  - Osteoporosis [Unknown]
  - Wrist fracture [Unknown]
  - Radius fracture [Unknown]
  - Fall [Unknown]
  - Calcium deficiency [Unknown]
  - Cataract [Unknown]
  - Arthritis [Unknown]
  - Dehydration [Unknown]
  - Joint injury [Unknown]
  - Forearm fracture [Unknown]
  - Ulna fracture [Unknown]
  - Depression [Unknown]
